FAERS Safety Report 23024401 (Version 1)
Quarter: 2023Q4

REPORT INFORMATION
  Report Type: Spontaneous
  Country: US (occurrence: US)
  Receive Date: 20231004
  Receipt Date: 20231004
  Transmission Date: 20240110
  Serious: Yes (Other)
  Sender: FDA-Public Use
  Company Number: US-AUROBINDO-AUR-APL-2023-061316

PATIENT
  Age: 60 Year
  Sex: Male

DRUGS (3)
  1. TRIAMCINOLONE [Suspect]
     Active Substance: TRIAMCINOLONE
     Indication: Rosai-Dorfman syndrome
     Dosage: 20 MILLIGRAM/MILILITER
     Route: 026
  2. IMIQUIMOD [Suspect]
     Active Substance: IMIQUIMOD
     Indication: Rosai-Dorfman syndrome
     Dosage: UNK, ONCE A DAY
     Route: 061
  3. SIROLIMUS [Suspect]
     Active Substance: SIROLIMUS
     Indication: Rosai-Dorfman syndrome
     Dosage: UNK, TWO TIMES A DAY
     Route: 065

REACTIONS (1)
  - Drug ineffective [Unknown]
